FAERS Safety Report 5165593-8 (Version None)
Quarter: 2006Q4

REPORT INFORMATION
  Report Type: 
  Country: None (occurrence: None)
  Receive Date: 20061206
  Receipt Date: 20061030
  Transmission Date: 20070319
  Serious: Yes (Death)
  Sender: FDA-Public Use
  Company Number: 468068

PATIENT
  Age: 75 Year
  Sex: Male

DRUGS (12)
  1. CARVEDILOL [Suspect]
     Indication: CARDIAC FAILURE CHRONIC
     Route: 048
     Dates: start: 20041223
  2. BUFFERIN [Concomitant]
     Dates: start: 20041222, end: 20051030
  3. LIPITOR [Concomitant]
     Dates: start: 20041222, end: 20051030
  4. ACECOL [Concomitant]
     Dates: start: 20041222, end: 20051030
  5. DIART [Concomitant]
     Dates: start: 20041222, end: 20051030
  6. AMARYL [Concomitant]
     Dates: start: 20041222, end: 20051030
  7. ALLOPURINOL [Concomitant]
     Dates: start: 20041222
  8. ALDACTONE [Concomitant]
     Dates: start: 20041222, end: 20050606
  9. MAGNESIUM OXIDE [Concomitant]
     Dates: start: 20041222, end: 20051030
  10. GASTER D [Concomitant]
     Dates: start: 20041222, end: 20051028
  11. RABEPRAZOLE SODIUM [Concomitant]
  12. FUROSEMIDE [Concomitant]

REACTIONS (10)
  - ANAEMIA [None]
  - CARDIAC ARREST [None]
  - CARDIAC FAILURE [None]
  - CARDIO-RESPIRATORY ARREST [None]
  - DYSPNOEA [None]
  - FAECES DISCOLOURED [None]
  - FATIGUE [None]
  - GASTROINTESTINAL HAEMORRHAGE [None]
  - HEART RATE INCREASED [None]
  - OEDEMA PERIPHERAL [None]
